FAERS Safety Report 24852691 (Version 1)
Quarter: 2025Q1

REPORT INFORMATION
  Report Type: Spontaneous
  Country: GB (occurrence: GB)
  Receive Date: 20250116
  Receipt Date: 20250116
  Transmission Date: 20250409
  Serious: Yes (Other)
  Sender: ELI LILLY AND COMPANY
  Company Number: None

PATIENT
  Age: 58 Year
  Sex: Female
  Weight: 114 kg

DRUGS (1)
  1. MOUNJARO [Suspect]
     Active Substance: TIRZEPATIDE
     Indication: Weight control
     Route: 065
     Dates: start: 20241219

REACTIONS (10)
  - Lip swelling [Recovered/Resolved]
  - Palpitations [Recovered/Resolved]
  - Tachycardia [Recovering/Resolving]
  - Rash [Recovered/Resolved]
  - Respiratory disorder [Recovering/Resolving]
  - Pharyngeal swelling [Recovered/Resolved]
  - Swollen tongue [Recovering/Resolving]
  - Dizziness [Recovered/Resolved]
  - Fatigue [Recovered/Resolved]
  - Asthenia [Recovering/Resolving]

NARRATIVE: CASE EVENT DATE: 20241219
